FAERS Safety Report 5043863-1 (Version None)
Quarter: 2006Q2

REPORT INFORMATION
  Report Type: 
  Country: None (occurrence: None)
  Receive Date: 20060629
  Receipt Date: 20060616
  Transmission Date: 20061013
  Serious: Yes (Hospitalization)
  Sender: FDA-Public Use
  Company Number: 2006-DE-03105GD

PATIENT
  Sex: Female

DRUGS (1)
  1. NAPROXEN [Suspect]
     Indication: JUVENILE ARTHRITIS
     Dosage: 15 MG/KG (SEE TEXT, IN TWO DIVIDED DOSES), PO
     Route: 048

REACTIONS (4)
  - ANAEMIA [None]
  - GASTROENTERITIS [None]
  - LYMPHADENOPATHY [None]
  - PYREXIA [None]
